FAERS Safety Report 7957061-2 (Version None)
Quarter: 2011Q4

REPORT INFORMATION
  Report Type: 
  Country: None (occurrence: None)
  Receive Date: 20111205
  Receipt Date: 20111013
  Transmission Date: 20120403
  Serious: Yes (Other)
  Sender: FDA-Public Use
  Company Number: US-ROCHE-1014279

PATIENT
  Sex: Female

DRUGS (5)
  1. SYNTHROID [Concomitant]
     Indication: HYPOTHYROIDISM
  2. VILAZODONE HYDROCHLORIDE [Suspect]
     Indication: MAJOR DEPRESSION
     Route: 048
     Dates: start: 20110809, end: 20110815
  3. VILAZODONE HYDROCHLORIDE [Suspect]
     Route: 048
     Dates: start: 20110816, end: 20110822
  4. VILAZODONE HYDROCHLORIDE [Suspect]
     Route: 048
     Dates: start: 20110823, end: 20110919
  5. CLONAZEPAM [Suspect]
     Indication: GENERALISED ANXIETY DISORDER
     Dosage: DOES: 0.5 MG, 2 IN 1 DAY
     Route: 048
     Dates: start: 20110809

REACTIONS (3)
  - SUICIDE ATTEMPT [None]
  - AGGRESSION [None]
  - HALLUCINATION [None]
